FAERS Safety Report 10599791 (Version 3)
Quarter: 2015Q2

REPORT INFORMATION
  Report Type: Spontaneous
  Country: US (occurrence: US)
  Receive Date: 20141121
  Receipt Date: 20150618
  Transmission Date: 20150821
  Serious: Yes (Hospitalization, Other)
  Sender: FDA-Public Use
  Company Number: US-009507513-1411USA008938

PATIENT
  Sex: Female

DRUGS (6)
  1. CALCIUM (UNSPECIFIED) [Concomitant]
     Active Substance: CALCIUM
     Dosage: 500 MG, BID
     Route: 048
     Dates: start: 1990
  2. VITAMIN D [Concomitant]
     Active Substance: CHOLECALCIFEROL
     Dosage: 1000 MG, QD
     Dates: start: 1990
  3. ASPIRIN. [Concomitant]
     Active Substance: ASPIRIN
     Dosage: 81 MG, QD
     Dates: start: 1990
  4. FOSAMAX [Suspect]
     Active Substance: ALENDRONATE SODIUM
     Indication: OSTEOPOROSIS
     Dosage: 10 MG, QW
     Route: 048
     Dates: start: 199810, end: 200906
  5. CENTRUM SILVER [Concomitant]
     Active Substance: VITAMINS
     Dosage: ONCE DAILY
     Dates: start: 1990
  6. GLUCOSAMINE [Concomitant]
     Active Substance: GLUCOSAMINE
     Dosage: 3 TIMES DAILY
     Dates: start: 1990

REACTIONS (9)
  - Hypertension [Unknown]
  - Inappropriate schedule of drug administration [Unknown]
  - Hyperlipidaemia [Unknown]
  - Pericarditis [Unknown]
  - Thrombosis [Unknown]
  - Head injury [Unknown]
  - Spinal column stenosis [Unknown]
  - Femur fracture [Unknown]
  - Surgery [Unknown]

NARRATIVE: CASE EVENT DATE: 199810
